FAERS Safety Report 7735087-1 (Version None)
Quarter: 2011Q3

REPORT INFORMATION
  Report Type: 
  Country: None (occurrence: None)
  Receive Date: 20110907
  Receipt Date: 20110906
  Transmission Date: 20111222
  Serious: Yes (Hospitalization)
  Sender: FDA-Public Use
  Company Number: US-ELI_LILLY_AND_COMPANY-US201108008329

PATIENT
  Sex: Male
  Weight: 91.61 kg

DRUGS (5)
  1. EFFIENT [Suspect]
     Indication: ACUTE MYOCARDIAL INFARCTION
     Dosage: 10 MG, QD
     Dates: start: 20110729
  2. COZAAR [Concomitant]
     Dosage: 50 DF, QD
  3. COREG [Concomitant]
     Dosage: 25 DF, BID
  4. CRESTOR [Concomitant]
     Dosage: 20 MG, EACH EVENING
  5. ASPIRIN [Concomitant]
     Dosage: 325 DF, QD

REACTIONS (1)
  - GASTROOESOPHAGEAL REFLUX DISEASE [None]
